FAERS Safety Report 19791142 (Version 1)
Quarter: 2021Q3

REPORT INFORMATION
  Report Type: Other
  Country: DE (occurrence: DE)
  Receive Date: 20210906
  Receipt Date: 20210906
  Transmission Date: 20211014
  Serious: Yes (Other)
  Sender: FDA-Public Use
  Company Number: DE-MACLEODS PHARMA UK LTD-MAC2021032548

PATIENT

DRUGS (6)
  1. ESCITALOPRAM [Suspect]
     Active Substance: ESCITALOPRAM OXALATE
     Indication: DEPRESSION
     Dosage: 10 MILLIGRAM, QD; 0?29.3. GESTATIONAL WEEK, 1 {TRIMESTER}
     Route: 048
  2. QUETIAPINE. [Suspect]
     Active Substance: QUETIAPINE
     Indication: BORDERLINE PERSONALITY DISORDER
     Dosage: 200 MILLIGRAM, QD; 300 [MG/D ]/ INITIAL 200MG DAILY, DOSAGE INCREASED TO 300 MG DAILY; 0. ? 40.2. GE
     Route: 048
     Dates: start: 20200104
  3. BOOSTRIX [Concomitant]
     Active Substance: TETANUS TOXOID, REDUCED DIPHTHERIA TOXOID AND ACELLULAR PERTUSSIS VACCINE, ADSORBED ANTIGENS
     Indication: IMMUNISATION
     Dosage: UNK; 32.5.?32.5. GESTATIONAL WEEK, 3 {TRIMESTER}
     Route: 030
     Dates: start: 20200820, end: 20200820
  4. QUETIAPINE. [Suspect]
     Active Substance: QUETIAPINE
     Dosage: 300 MILLIGRAM, QD; 0. ? 40.2. GESTATIONAL WEEK
     Route: 048
     Dates: end: 20201012
  5. FOLSAURE [Concomitant]
     Active Substance: FOLIC ACID
     Indication: PROPHYLAXIS OF NEURAL TUBE DEFECT
     Dosage: UNK; 0.?35.4. GESTATIONAL WEEK, 1 {TRIMESTER}
     Route: 048
     Dates: start: 20200104, end: 20200909
  6. OMEPRAZOLE. [Concomitant]
     Active Substance: OMEPRAZOLE
     Indication: PRODUCT USED FOR UNKNOWN INDICATION
     Dosage: 20 MILLIGRAM, QD; IF NECESSARY/IF REQUIRED; TRIMESTER 1ST+ 3RD, 1 {TRIMESTER}
     Route: 048

REACTIONS (2)
  - Exposure during pregnancy [Unknown]
  - Gestational diabetes [Recovered/Resolved]
